FAERS Safety Report 18920141 (Version 3)
Quarter: 2021Q2

REPORT INFORMATION
  Report Type: Other
  Country: FR (occurrence: FR)
  Receive Date: 20210222
  Receipt Date: 20210404
  Transmission Date: 20210717
  Serious: Yes (Other)
  Sender: FDA-Public Use
  Company Number: FR-CELLTRION INC.-2021FR001869

PATIENT

DRUGS (3)
  1. POLATUZUMAB VEDOTIN. [Suspect]
     Active Substance: POLATUZUMAB VEDOTIN
     Indication: DIFFUSE LARGE B-CELL LYMPHOMA
     Dosage: FIRST CYCLE, SECOND CYCLE ON 06/JUL/2020, THIRD CYCLE 30/JUL/2020, FOURTH CYCLE 27/AUG/2020 FIFTH CY
     Route: 042
     Dates: start: 20200615
  2. RITUXIMAB (UNKNOWN) [Suspect]
     Active Substance: RITUXIMAB
     Indication: DIFFUSE LARGE B-CELL LYMPHOMA
     Dosage: FIRST CYCLE, SECOND CYCLE ON 06/JUL/2020, THIRD CYCLE 30/JUL/2020, FOURTH CYCLE 27/AUG/2020 FIFTH CY
     Route: 042
     Dates: start: 20200615
  3. BENDAMUSTINE [Suspect]
     Active Substance: BENDAMUSTINE
     Indication: DIFFUSE LARGE B-CELL LYMPHOMA
     Dosage: FIRST CYCLE, SECOND CYCLE ON 06/JUL/2020, THIRD CYCLE 30/JUL/2020, FOURTH CYCLE 27/AUG/2020 FIFTH CY
     Route: 042
     Dates: start: 20200615

REACTIONS (6)
  - Asthenia [Not Recovered/Not Resolved]
  - Thrombocytopenia [Not Recovered/Not Resolved]
  - Infection [Unknown]
  - Diarrhoea infectious [Recovered/Resolved]
  - Underdose [Unknown]
  - Neutropenia [Not Recovered/Not Resolved]

NARRATIVE: CASE EVENT DATE: 20200708
